FAERS Safety Report 4672800-4 (Version None)
Quarter: 2005Q2

REPORT INFORMATION
  Report Type: 
  Country: None (occurrence: None)
  Receive Date: 20050523
  Receipt Date: 20050511
  Transmission Date: 20051028
  Serious: Yes (Death)
  Sender: FDA-Public Use
  Company Number: HQWYE688512MAY05

PATIENT
  Age: 74 Year
  Sex: Male

DRUGS (5)
  1. CORDARONE [Suspect]
     Indication: CARDIOMYOPATHY
     Dosage: 200 MG 1X PER 1 DAY, ORAL
     Route: 048
  2. ARICEPT [Suspect]
     Indication: DEMENTIA ALZHEIMER'S TYPE
     Dosage: 10 MG 1X PER 1 DAY, ORAL
     Route: 048
  3. WARFARIN SODIUM [Suspect]
     Indication: CARDIOMYOPATHY
     Dosage: ORAL
     Route: 048
     Dates: end: 20050301
  4. ALDACTONE [Concomitant]
  5. BUMETANIDE [Concomitant]

REACTIONS (12)
  - BLOOD SODIUM DECREASED [None]
  - CONDITION AGGRAVATED [None]
  - DRUG INTERACTION [None]
  - GENERAL PHYSICAL HEALTH DETERIORATION [None]
  - HEPATIC FAILURE [None]
  - HEPATITIS TOXIC [None]
  - HEPATOTOXICITY [None]
  - INTERNATIONAL NORMALISED RATIO INCREASED [None]
  - LIPASE INCREASED [None]
  - NEUTROPHIL COUNT INCREASED [None]
  - ORAL INTAKE REDUCED [None]
  - RENAL FAILURE [None]
